FAERS Safety Report 9741759 (Version 1)
Quarter: 2013Q4

REPORT INFORMATION
  Report Type: Report from Study
  Country: DE (occurrence: DE)
  Receive Date: 20131210
  Receipt Date: 20131210
  Transmission Date: 20140711
  Serious: Yes (Hospitalization)
  Sender: FDA-Public Use
  Company Number: DE-ROCHE-1316520

PATIENT
  Age: 60 Year
  Sex: Male
  Weight: 75 kg

DRUGS (5)
  1. RITUXIMAB [Suspect]
     Indication: RHEUMATOID ARTHRITIS
     Route: 042
     Dates: start: 20130827
  2. LEFLUNOMID [Concomitant]
     Route: 048
     Dates: start: 20100127
  3. PREDNISOLON [Concomitant]
     Route: 048
     Dates: start: 20100127
  4. PANTOPRAZOL [Concomitant]
     Route: 048
     Dates: start: 20100127
  5. FERRO SANOL DUODENAL [Concomitant]
     Route: 048
     Dates: start: 20130308

REACTIONS (1)
  - Cerebrovascular accident [Recovered/Resolved]
